FAERS Safety Report 4960336-2 (Version None)
Quarter: 2006Q2

REPORT INFORMATION
  Report Type: 
  Country: None (occurrence: None)
  Receive Date: 20060403
  Receipt Date: 20060202
  Transmission Date: 20061013
  Serious: Yes (Death)
  Sender: FDA-Public Use
  Company Number: US-BRISTOL-MYERS SQUIBB COMPANY-13269477

PATIENT
  Age: 55 Year
  Sex: Male

DRUGS (1)
  1. MEGACE [Suspect]
     Indication: INCREASED APPETITE
     Route: 048
     Dates: start: 20050801

REACTIONS (1)
  - MALIGNANT NEOPLASM PROGRESSION [None]
